FAERS Safety Report 25469578 (Version 1)
Quarter: 2025Q2

REPORT INFORMATION
  Report Type: Report from Study
  Country: US (occurrence: US)
  Receive Date: 20250623
  Receipt Date: 20250623
  Transmission Date: 20250717
  Serious: Yes (Other)
  Sender: UCB
  Company Number: US-UCBSA-2025037433

PATIENT
  Sex: Male

DRUGS (4)
  1. LEVETIRACETAM [Suspect]
     Active Substance: LEVETIRACETAM
     Indication: Seizure
  2. LEVETIRACETAM [Suspect]
     Active Substance: LEVETIRACETAM
     Dosage: 1500 MILLIGRAM, 2X/DAY (BID)
     Route: 048
  3. DILANTIN [Concomitant]
     Active Substance: PHENYTOIN
     Indication: Seizure
     Dosage: 300 MILLIGRAM, ONCE DAILY (QD)
     Route: 048
  4. LACOSAMIDE [Concomitant]
     Active Substance: LACOSAMIDE
     Indication: Seizure
     Dosage: 300 MILLIGRAM, 2X/DAY (BID)
     Route: 048

REACTIONS (2)
  - Seizure [Recovered/Resolved]
  - Inappropriate schedule of product administration [Unknown]
